FAERS Safety Report 5847733-8 (Version None)
Quarter: 2008Q3

REPORT INFORMATION
  Report Type: 
  Country: None (occurrence: None)
  Receive Date: 20080814
  Receipt Date: 20080814
  Transmission Date: 20090109
  Serious: Yes (Other)
  Sender: FDA-Public Use
  Company Number: None

PATIENT
  Sex: Female
  Weight: 67.586 kg

DRUGS (1)
  1. GAMMAGARD LIQUID [Suspect]
     Indication: MULTIPLE SCLEROSIS
     Dosage: 27.5GM DAILY X 5 DAYS IV DRIP
     Route: 041
     Dates: start: 20080804, end: 20080808

REACTIONS (2)
  - BLISTER [None]
  - ERYTHEMA [None]
